FAERS Safety Report 12651105 (Version 1)
Quarter: 2016Q3

REPORT INFORMATION
  Report Type: Spontaneous
  Country: US (occurrence: US)
  Receive Date: 20160815
  Receipt Date: 20160815
  Transmission Date: 20161109
  Serious: No
  Sender: FDA-Public Use
  Company Number: US-JAZZ-2016-US-005357

PATIENT
  Sex: Female

DRUGS (21)
  1. VITAMIN B12 [Concomitant]
     Active Substance: CYANOCOBALAMIN
  2. BUTALBITAL [Concomitant]
     Active Substance: BUTALBITAL
  3. FROVA [Concomitant]
     Active Substance: FROVATRIPTAN SUCCINATE
  4. MAGNESIUM OXIDE. [Concomitant]
     Active Substance: MAGNESIUM OXIDE
  5. PROBIOTIC [Concomitant]
     Active Substance: PROBIOTICS NOS
  6. VITAMIN B2 [Concomitant]
     Active Substance: RIBOFLAVIN
  7. XYREM [Suspect]
     Active Substance: SODIUM OXYBATE
     Indication: HYPERSOMNIA
     Dosage: 2.25 G, BID
     Route: 048
     Dates: start: 201102, end: 2011
  8. TOPAMAX [Concomitant]
     Active Substance: TOPIRAMATE
  9. ADVIL [Concomitant]
     Active Substance: IBUPROFEN
  10. ETODOLAC. [Concomitant]
     Active Substance: ETODOLAC
  11. ZOLOFT [Concomitant]
     Active Substance: SERTRALINE HYDROCHLORIDE
  12. SYNTHROID [Concomitant]
     Active Substance: LEVOTHYROXINE SODIUM
  13. VALACYCLOVIR [Concomitant]
     Active Substance: VALACYCLOVIR HYDROCHLORIDE
  14. NAPROXEN. [Concomitant]
     Active Substance: NAPROXEN
  15. PROMETHAZINE [Concomitant]
     Active Substance: PROMETHAZINE\PROMETHAZINE HYDROCHLORIDE
  16. XYREM [Suspect]
     Active Substance: SODIUM OXYBATE
     Dosage: 3 G, BID
     Route: 048
     Dates: start: 2011, end: 2014
  17. LAMISIL [Concomitant]
     Active Substance: TERBINAFINE HYDROCHLORIDE
  18. RELPAX [Concomitant]
     Active Substance: ELETRIPTAN HYDROBROMIDE
  19. ADDERALL [Concomitant]
     Active Substance: AMPHETAMINE ASPARTATE\AMPHETAMINE SULFATE\DEXTROAMPHETAMINE SACCHARATE\DEXTROAMPHETAMINE SULFATE
  20. SUDAFED [Concomitant]
     Active Substance: PSEUDOEPHEDRINE HYDROCHLORIDE
  21. ADDERALL [Concomitant]
     Active Substance: AMPHETAMINE ASPARTATE\AMPHETAMINE SULFATE\DEXTROAMPHETAMINE SACCHARATE\DEXTROAMPHETAMINE SULFATE

REACTIONS (3)
  - Depression [Unknown]
  - Nasopharyngitis [Not Recovered/Not Resolved]
  - Dyspnoea [Not Recovered/Not Resolved]
